FAERS Safety Report 9629530 (Version 4)
Quarter: 2013Q4

REPORT INFORMATION
  Report Type: Spontaneous
  Country: US (occurrence: US)
  Receive Date: 20131017
  Receipt Date: 20131219
  Transmission Date: 20140711
  Serious: Yes (Other)
  Sender: FDA-Public Use
  Company Number: US-TARO-2013P1020084

PATIENT
  Age: 75 Year
  Sex: Female
  Weight: 75.75 kg

DRUGS (14)
  1. WARFARIN SODIUM TABLETS USP 5MG [Suspect]
     Route: 048
     Dates: start: 20130615
  2. WARFARIN SODIUM TABLETS USP 5MG [Suspect]
     Route: 048
     Dates: start: 20130615
  3. HYDROXYCHLOROQUINE (RAN) 200 MG [Suspect]
     Indication: DERMATOMYOSITIS
     Dates: start: 2008, end: 201309
  4. ALBUTEROL RESCUE INHALER [Concomitant]
  5. SYMBICORT [Concomitant]
  6. DILTIAZEM [Concomitant]
     Dates: start: 1993
  7. LISINOPRIL/HYDROCHLOROTHIAZIDE [Concomitant]
     Dates: start: 2011
  8. METHOTREXATE INJECTABLE [Concomitant]
     Dates: start: 2008
  9. ARMOUR THYROID [Concomitant]
     Dates: start: 2004
  10. ATORVASTATIN [Concomitant]
     Dates: start: 1998
  11. FOLIC ACID [Concomitant]
     Dates: start: 2008
  12. OXYBUTYNIN [Concomitant]
  13. PRILOSEC [Concomitant]
  14. GLIPIZIDE [Concomitant]

REACTIONS (5)
  - Peripheral embolism [Not Recovered/Not Resolved]
  - Visual acuity reduced [Recovered/Resolved]
  - Visual impairment [Recovered/Resolved]
  - Drug ineffective [Not Recovered/Not Resolved]
  - Drug interaction [Unknown]
